FAERS Safety Report 22117027 (Version 1)
Quarter: 2023Q1

REPORT INFORMATION
  Report Type: Spontaneous
  Country: US (occurrence: None)
  Receive Date: 20230320
  Receipt Date: 20230320
  Transmission Date: 20230418
  Serious: No
  Sender: FDA-Public Use
  Company Number: 2023A048382

PATIENT
  Age: 942 Month
  Sex: Female

DRUGS (1)
  1. FARXIGA [Suspect]
     Active Substance: DAPAGLIFLOZIN PROPANEDIOL
     Route: 048

REACTIONS (8)
  - Cellulitis [Not Recovered/Not Resolved]
  - Seborrhoeic keratosis [Not Recovered/Not Resolved]
  - Erythema [Unknown]
  - Irritability [Unknown]
  - Pain [Unknown]
  - Eye swelling [Unknown]
  - Dry skin [Unknown]
  - Burning sensation [Unknown]

NARRATIVE: CASE EVENT DATE: 20221001
